FAERS Safety Report 19791266 (Version 1)
Quarter: 2021Q3

REPORT INFORMATION
  Report Type: Spontaneous
  Country: US (occurrence: US)
  Receive Date: 20210906
  Receipt Date: 20210906
  Transmission Date: 20211014
  Serious: No
  Sender: FDA-Public Use
  Company Number: US-APOTEX-2021AP020439

PATIENT
  Sex: Female

DRUGS (1)
  1. BUTORPHANOL TARTRATE NASAL SPRAY [Suspect]
     Active Substance: BUTORPHANOL TARTRATE
     Indication: MIGRAINE
     Dosage: UNK, 1 SPRAY EVERY 4 HOURS AS NEEDED
     Route: 045

REACTIONS (4)
  - Device breakage [Unknown]
  - No adverse event [Unknown]
  - Product appearance confusion [Unknown]
  - Product dose omission issue [Unknown]
